FAERS Safety Report 25134362 (Version 1)
Quarter: 2025Q1

REPORT INFORMATION
  Report Type: Spontaneous
  Country: GB (occurrence: GB)
  Receive Date: 20250328
  Receipt Date: 20250328
  Transmission Date: 20250408
  Serious: Yes (Other)
  Sender: RANBAXY
  Company Number: GB-MHRA-TPP19330057C20918503YC1741859121527

PATIENT
  Age: 93 Year
  Sex: Male
  Weight: 57 kg

DRUGS (9)
  1. CODEINE [Suspect]
     Active Substance: CODEINE
     Indication: Product used for unknown indication
     Route: 065
     Dates: start: 20250121, end: 20250129
  2. MEDI DERMA-S [Concomitant]
     Indication: Ill-defined disorder
     Route: 065
     Dates: start: 20250121
  3. TAMSULOSIN [Concomitant]
     Active Substance: TAMSULOSIN
     Indication: Ill-defined disorder
     Route: 065
     Dates: start: 20230322, end: 20250219
  4. ASPIRIN [Concomitant]
     Active Substance: ASPIRIN
     Indication: Ill-defined disorder
     Route: 065
     Dates: start: 20230322, end: 20250219
  5. ACETAMINOPHEN [Concomitant]
     Active Substance: ACETAMINOPHEN
     Indication: Ill-defined disorder
     Route: 065
     Dates: start: 20230322, end: 20250219
  6. SIMVASTATIN [Concomitant]
     Active Substance: SIMVASTATIN
     Indication: Ill-defined disorder
     Route: 065
     Dates: start: 20230322, end: 20241216
  7. FOLIC ACID [Concomitant]
     Active Substance: FOLIC ACID
     Indication: Ill-defined disorder
     Route: 065
     Dates: start: 20240912, end: 20250219
  8. BISOPROLOL [Concomitant]
     Active Substance: BISOPROLOL
     Indication: Ill-defined disorder
     Route: 065
     Dates: start: 20241120, end: 20250219
  9. FENBID [Concomitant]
     Indication: Ill-defined disorder
     Route: 065
     Dates: start: 20241231, end: 20250219

REACTIONS (2)
  - Overdose [Unknown]
  - Somnolence [Recovered/Resolved]

NARRATIVE: CASE EVENT DATE: 20250128
